FAERS Safety Report 14688289 (Version 1)
Quarter: 2018Q1

REPORT INFORMATION
  Report Type: Spontaneous
  Country: FR (occurrence: FR)
  Receive Date: 20180328
  Receipt Date: 20180328
  Transmission Date: 20180509
  Serious: Yes (Disabling)
  Sender: FDA-Public Use
  Company Number: FR-MERCK KGAA-2044668

PATIENT
  Age: 45 Year
  Sex: Female

DRUGS (1)
  1. NOVOTHYROX [Suspect]
     Active Substance: LEVOTHYROXINE SODIUM
     Indication: PRODUCT USED FOR UNKNOWN INDICATION

REACTIONS (22)
  - Emotional distress [None]
  - Depression [None]
  - Mood swings [None]
  - Personal relationship issue [None]
  - Muscle spasms [None]
  - Disability [None]
  - Loss of personal independence in daily activities [None]
  - Fatigue [None]
  - Mental fatigue [None]
  - Social avoidant behaviour [None]
  - Anxiety [None]
  - Palpitations [None]
  - Feeling abnormal [None]
  - Chest discomfort [None]
  - Asthenia [None]
  - Dizziness [None]
  - Irritability [None]
  - Insomnia [None]
  - Hyperhidrosis [None]
  - Blood thyroid stimulating hormone increased [None]
  - Mean cell haemoglobin decreased [None]
  - Headache [None]

NARRATIVE: CASE EVENT DATE: 201704
